FAERS Safety Report 5580180-5 (Version None)
Quarter: 2007Q4

REPORT INFORMATION
  Report Type: 
  Country: None (occurrence: None)
  Receive Date: 20071227
  Receipt Date: 20071227
  Transmission Date: 20080405
  Serious: Yes (Death)
  Sender: FDA-Public Use
  Company Number: None

PATIENT
  Age: 2 Year
  Sex: Male
  Weight: 10.4327 kg

DRUGS (2)
  1. ATIVAN [Suspect]
     Dosage: IV HOURLY
     Route: 042
     Dates: start: 20050921, end: 20050922
  2. BARBITURATE UNKNOWN UNIDENTIFIED [Suspect]
     Dosage: IV HOURLY
     Dates: start: 20050921, end: 20050922

REACTIONS (1)
  - DEATH [None]
